FAERS Safety Report 8890218 (Version 1)
Quarter: 2012Q4

REPORT INFORMATION
  Report Type: Report from Study
  Country: CA (occurrence: CA)
  Receive Date: 20121107
  Receipt Date: 20121107
  Transmission Date: 20130627
  Serious: Yes (Other)
  Sender: FDA-Public Use
  Company Number: CA-JNJFOC-20121014327

PATIENT
  Sex: Female
  Weight: 61.8 kg

DRUGS (5)
  1. REMICADE [Suspect]
     Indication: CROHN^S DISEASE
     Route: 042
     Dates: start: 200807
  2. PENTASA [Concomitant]
     Route: 065
  3. LOSEC [Concomitant]
     Route: 065
  4. METHOTREXATE [Concomitant]
     Route: 065
  5. HYDROXYCHLOROQUINE [Concomitant]
     Route: 065

REACTIONS (4)
  - Chest pain [Not Recovered/Not Resolved]
  - Dyspnoea [Not Recovered/Not Resolved]
  - Painful respiration [Not Recovered/Not Resolved]
  - Nasopharyngitis [Not Recovered/Not Resolved]
